FAERS Safety Report 10649045 (Version 1)
Quarter: 2014Q4

REPORT INFORMATION
  Report Type: Spontaneous
  Country: US (occurrence: None)
  Receive Date: 20141205
  Receipt Date: 20141205
  Transmission Date: 20150529
  Serious: Yes (Other)
  Sender: FDA-Public Use
  Company Number: 163-POMAL-14083569

PATIENT
  Age: 76 Year
  Sex: Female
  Weight: 72.7 kg

DRUGS (12)
  1. DEXAMETHASONE. [Concomitant]
     Active Substance: DEXAMETHASONE
  2. CHONDROITIN [Concomitant]
     Active Substance: CHONDROITIN
  3. VITAMIN B3 (NICOTINAMIDE) [Concomitant]
  4. POTASSIUM [Concomitant]
     Active Substance: POTASSIUM
  5. VITAMIN C [Concomitant]
     Active Substance: ASCORBIC ACID
  6. MELOXICAM. [Concomitant]
     Active Substance: MELOXICAM
  7. CYANOCOBALAMIN. [Concomitant]
     Active Substance: CYANOCOBALAMIN
  8. GLUCOSAMINE [Concomitant]
     Active Substance: GLUCOSAMINE
  9. POMALYST [Suspect]
     Active Substance: POMALIDOMIDE
     Indication: PLASMA CELL MYELOMA
     Route: 048
     Dates: start: 20140718, end: 2014
  10. ACYCLOVIR. [Concomitant]
     Active Substance: ACYCLOVIR
  11. SIMVASTATIN. [Concomitant]
     Active Substance: SIMVASTATIN
  12. CALCIUM CARBONATE WITH VITAMIN D (LEKOVIT CA) [Concomitant]

REACTIONS (3)
  - Neutropenia [None]
  - Peripheral swelling [None]
  - Pyrexia [None]

NARRATIVE: CASE EVENT DATE: 2014
